FAERS Safety Report 4650526-0 (Version None)
Quarter: 2005Q2

REPORT INFORMATION
  Report Type: 
  Country: None (occurrence: None)
  Receive Date: 20050428
  Receipt Date: 20050422
  Transmission Date: 20051028
  Serious: Yes (Life-Threatening)
  Sender: FDA-Public Use
  Company Number: 2005UW06364

PATIENT
  Age: 33 Year
  Sex: Male

DRUGS (1)
  1. SEROQUEL [Suspect]
     Indication: BIPOLAR DISORDER

REACTIONS (6)
  - FEAR [None]
  - HALLUCINATION, AUDITORY [None]
  - MENTAL DISORDER [None]
  - MURDER [None]
  - PERSECUTORY DELUSION [None]
  - REGRESSIVE BEHAVIOUR [None]
